FAERS Safety Report 4636171-1 (Version None)
Quarter: 2005Q2

REPORT INFORMATION
  Report Type: 
  Country: None (occurrence: None)
  Receive Date: 20050413
  Receipt Date: 20050413
  Transmission Date: 20051028
  Serious: Yes (Disabling)
  Sender: FDA-Public Use
  Company Number: None

PATIENT
  Age: 82 Year
  Sex: Female
  Weight: 81.6475 kg

DRUGS (2)
  1. GENTAMYCIN SULFATE [Suspect]
     Indication: VESTIBULAR DISORDER
     Dates: start: 20040101
  2. GENTAMYCIN SULFATE [Suspect]
     Indication: VESTIBULAR DISORDER
     Dates: start: 20040201

REACTIONS (4)
  - BALANCE DISORDER [None]
  - GAIT DISTURBANCE [None]
  - VESTIBULAR DISORDER [None]
  - VISION BLURRED [None]
